FAERS Safety Report 9547508 (Version 4)
Quarter: 2013Q4

REPORT INFORMATION
  Report Type: Spontaneous
  Country: US (occurrence: None)
  Receive Date: 20130920
  Receipt Date: 20131129
  Transmission Date: 20140711
  Serious: Yes (Other)
  Sender: FDA-Public Use
  Company Number: AUR-APL-2013-07715

PATIENT
  Age: 51 Year
  Sex: Female

DRUGS (5)
  1. LEVETIRACETAM [Suspect]
     Indication: CONVULSION
     Dosage: 5000 MG, 1 IN 1 D, ORAL
     Route: 048
     Dates: start: 20130815
  2. SYNTHROID (LEVOTHYROXINE SODIUM) [Concomitant]
  3. LAMICTAL (LAMOTRIGINE) [Concomitant]
  4. PRIMIDONE (PRIMIDONE) [Concomitant]
  5. BACLOFEN (BACLOFEN) [Concomitant]

REACTIONS (3)
  - Convulsion [None]
  - Drug ineffective [None]
  - Product substitution issue [None]
